FAERS Safety Report 9193068 (Version 1)
Quarter: 2013Q1

REPORT INFORMATION
  Report Type: Report from Study
  Country: CN (occurrence: CN)
  Receive Date: 20130327
  Receipt Date: 20130327
  Transmission Date: 20140127
  Serious: Yes (Death)
  Sender: FDA-Public Use
  Company Number: US-ASTELLAS-2013US003266

PATIENT
  Age: 45 None
  Sex: Male

DRUGS (3)
  1. ERLOTINIB TABLET [Suspect]
     Indication: NON-SMALL CELL LUNG CANCER
     Dosage: 150 MG, UID/QD
     Route: 048
     Dates: start: 20120921
  2. ERLOTINIB TABLET [Suspect]
     Dosage: 75 MG, UID/QD
     Route: 048
     Dates: end: 201301
  3. ERLOTINIB TABLET [Suspect]
     Dosage: 150 MG, UID/QD
     Route: 048
     Dates: start: 201301

REACTIONS (2)
  - Rash [Unknown]
  - Respiratory failure [Fatal]
